FAERS Safety Report 24935872 (Version 1)
Quarter: 2025Q1

REPORT INFORMATION
  Report Type: Report from Study
  Country: US (occurrence: US)
  Receive Date: 20250206
  Receipt Date: 20250206
  Transmission Date: 20250408
  Serious: Yes (Other)
  Sender: EXELIXIS
  Company Number: US-EXELIXIS-EXL-2024-000235

PATIENT
  Sex: Female
  Weight: 108.29 kg

DRUGS (3)
  1. CABOMETYX [Suspect]
     Active Substance: CABOZANTINIB S-MALATE
     Indication: Renal cancer
     Dosage: 60 MG, QD
     Route: 048
     Dates: start: 20240824
  2. CABOMETYX [Suspect]
     Active Substance: CABOZANTINIB S-MALATE
     Route: 048
     Dates: end: 20240917
  3. SUCRALFATE [Suspect]
     Active Substance: SUCRALFATE
     Indication: Product used for unknown indication

REACTIONS (13)
  - Blood pressure increased [Unknown]
  - Rectal haemorrhage [Unknown]
  - Muscle disorder [Unknown]
  - Bone disorder [Unknown]
  - Malaise [Unknown]
  - Abdominal discomfort [Unknown]
  - Neck pain [Recovering/Resolving]
  - Anxiety [Unknown]
  - Chest pain [Recovering/Resolving]
  - Sleep-related eating disorder [Unknown]
  - Intracranial mass [Unknown]
  - Overdose [Unknown]
  - Intentional dose omission [Unknown]
